FAERS Safety Report 8438977-X (Version None)
Quarter: 2012Q2

REPORT INFORMATION
  Report Type: 
  Country: None (occurrence: None)
  Receive Date: 20120323
  Receipt Date: 20111123
  Transmission Date: 20120825
  Serious: Yes (Hospitalization, Other)
  Sender: FDA-Public Use
  Company Number: 163-21880-11053499

PATIENT
  Age: 64 Year
  Sex: Male

DRUGS (6)
  1. OXYCODONE HCL [Concomitant]
  2. REVLIMID [Suspect]
     Indication: MULTIPLE MYELOMA
     Dosage: 25 MG, DAILY FOR 2 WEEKS ON, 1 WEEK OFF, REPEAT, PO, 15 MG, DAILY FOR 14 DAYS; 14 DAYS OFF, PO
     Route: 048
     Dates: start: 20110421, end: 20110501
  3. REVLIMID [Suspect]
     Indication: MULTIPLE MYELOMA
     Dosage: 25 MG, DAILY FOR 2 WEEKS ON, 1 WEEK OFF, REPEAT, PO, 15 MG, DAILY FOR 14 DAYS; 14 DAYS OFF, PO
     Route: 048
     Dates: start: 20110701, end: 20111013
  4. VELCADE [Concomitant]
  5. DEXAMETHASONE [Concomitant]
  6. LOVENOX [Concomitant]

REACTIONS (6)
  - BRONCHITIS [None]
  - DEHYDRATION [None]
  - NAUSEA [None]
  - CONSTIPATION [None]
  - VOMITING [None]
  - ASTHENIA [None]
